FAERS Safety Report 11795574 (Version 1)
Quarter: 2015Q4

REPORT INFORMATION
  Report Type: Spontaneous
  Country: US (occurrence: US)
  Receive Date: 20151202
  Receipt Date: 20151202
  Transmission Date: 20160305
  Serious: Yes (Other)
  Sender: FDA-Public Use
  Company Number: US-009507513-1006USA01837

PATIENT

DRUGS (1)
  1. MK-3009 [Suspect]
     Active Substance: DAPTOMYCIN
     Indication: BACTERIAL INFECTION
     Route: 042

REACTIONS (2)
  - Interstitial lung disease [Unknown]
  - Eosinophilic pneumonia [Unknown]
